FAERS Safety Report 4733007-5 (Version None)
Quarter: 2005Q3

REPORT INFORMATION
  Report Type: 
  Country: None (occurrence: None)
  Receive Date: 20050801
  Receipt Date: 20050801
  Transmission Date: 20060218
  Serious: Yes (Hospitalization)
  Sender: FDA-Public Use
  Company Number: None

PATIENT
  Age: 61 Year
  Sex: Female
  Weight: 65.9 kg

DRUGS (7)
  1. IRINOTECAN 20MG/ML PFIZER [Suspect]
     Indication: COLON CANCER METASTATIC
     Dosage: 413MG Q21DAYS INTRAVENOU
     Route: 042
     Dates: start: 20050516, end: 20050627
  2. CAPECITABINE 500MG + 150MG ROCHE [Suspect]
     Indication: COLON CANCER METASTATIC
     Dosage: 1500MG BID ORAL
     Route: 048
     Dates: start: 20050516, end: 20050627
  3. BEVACIZUMAB [Concomitant]
  4. THYROID TAB [Concomitant]
  5. PREMARIN [Concomitant]
  6. VICODIN [Concomitant]
  7. PROTONIX [Concomitant]

REACTIONS (1)
  - DIARRHOEA [None]
